FAERS Safety Report 21684129 (Version 17)
Quarter: 2024Q4

REPORT INFORMATION
  Report Type: Report from Study
  Country: BR (occurrence: BR)
  Receive Date: 20221205
  Receipt Date: 20241028
  Transmission Date: 20250115
  Serious: Yes (Other)
  Sender: TAKEDA
  Company Number: BR-TAKEDA-BR201925106

PATIENT
  Age: 8 Year
  Sex: Male
  Weight: 29.932 kg

DRUGS (15)
  1. IDURSULFASE [Suspect]
     Active Substance: IDURSULFASE
     Indication: Mucopolysaccharidosis II
     Dosage: 2 DOSAGE FORM, 1/WEEK
     Route: 042
  2. IDURSULFASE [Suspect]
     Active Substance: IDURSULFASE
     Dosage: 2 DOSAGE FORM, 1/WEEK
     Route: 042
  3. IDURSULFASE [Suspect]
     Active Substance: IDURSULFASE
     Dosage: 2 DOSAGE FORM
     Route: 042
  4. IDURSULFASE [Suspect]
     Active Substance: IDURSULFASE
     Dosage: UNK
     Route: 042
  5. IDURSULFASE [Suspect]
     Active Substance: IDURSULFASE
     Dosage: 2 MILLIGRAM
     Route: 042
  6. IDURSULFASE [Suspect]
     Active Substance: IDURSULFASE
     Dosage: 2 MILLIGRAM
     Route: 042
  7. IDURSULFASE [Suspect]
     Active Substance: IDURSULFASE
     Dosage: 3 DOSAGE FORM, 1/WEEK
     Route: 065
  8. IDURSULFASE [Suspect]
     Active Substance: IDURSULFASE
     Dosage: 0.5 MILLIGRAM/KILOGRAM
     Route: 042
  9. IDURSULFASE [Suspect]
     Active Substance: IDURSULFASE
     Dosage: 3 DOSAGE FORM
     Route: 042
     Dates: start: 2021
  10. IDURSULFASE [Suspect]
     Active Substance: IDURSULFASE
     Dosage: 4 DOSAGE FORM
     Route: 042
     Dates: start: 2021
  11. IDURSULFASE [Suspect]
     Active Substance: IDURSULFASE
     Dosage: 14 DOSAGE FORM, MONTHLY
     Route: 042
     Dates: start: 2021
  12. IDURSULFASE [Suspect]
     Active Substance: IDURSULFASE
     Dosage: 3 DOSAGE FORM
     Route: 042
  13. IDURSULFASE [Suspect]
     Active Substance: IDURSULFASE
     Dosage: UNK UNK, 1/WEEK
     Route: 042
  14. IDURSULFASE [Suspect]
     Active Substance: IDURSULFASE
     Dosage: UNK
     Route: 042
  15. ACETAMINOPHEN [Suspect]
     Active Substance: ACETAMINOPHEN
     Indication: Product used for unknown indication
     Dosage: UNK
     Route: 065

REACTIONS (25)
  - Choking [Recovered/Resolved]
  - Sleep apnoea syndrome [Unknown]
  - Increased bronchial secretion [Recovered/Resolved]
  - Aortic valve incompetence [Unknown]
  - Laryngeal oedema [Unknown]
  - Pneumonia [Recovered/Resolved]
  - Malaise [Unknown]
  - Drug hypersensitivity [Unknown]
  - Pharyngitis [Unknown]
  - Oxygen saturation decreased [Unknown]
  - Oropharyngeal pain [Unknown]
  - Furuncle [Unknown]
  - Rhinitis [Unknown]
  - Psychomotor hyperactivity [Unknown]
  - Productive cough [Unknown]
  - Bedridden [Unknown]
  - Weight increased [Unknown]
  - Incorrect dose administered [Unknown]
  - Tremor [Unknown]
  - Dyspnoea [Unknown]
  - Diarrhoea [Unknown]
  - Abdominal pain [Unknown]
  - Inappropriate schedule of product administration [Unknown]
  - Fatigue [Recovered/Resolved]
  - Cough [Recovered/Resolved]

NARRATIVE: CASE EVENT DATE: 20220207
